FAERS Safety Report 10109007 (Version 3)
Quarter: 2014Q2

REPORT INFORMATION
  Report Type: Report from Study
  Country: US (occurrence: US)
  Receive Date: 20140425
  Receipt Date: 20140509
  Transmission Date: 20141212
  Serious: Yes (Hospitalization, Other)
  Sender: FDA-Public Use
  Company Number: US-ABBVIE-14P-163-1206064-00

PATIENT
  Age: 36 Year
  Sex: Female
  Weight: 62.2 kg

DRUGS (15)
  1. HUMIRA [Suspect]
     Indication: CROHN^S DISEASE
     Dates: start: 20140205, end: 20140205
  2. HUMIRA [Suspect]
     Dates: start: 20140219, end: 20140219
  3. HUMIRA [Suspect]
  4. HUMIRA [Suspect]
     Dates: start: 20140403
  5. BENADRYL [Suspect]
     Indication: PRODUCT USED FOR UNKNOWN INDICATION
  6. BENADRYL [Suspect]
     Indication: RASH
  7. GENEL LOESTRIN [Concomitant]
     Indication: CONTRACEPTION
  8. VITAMIN C [Concomitant]
     Indication: PRODUCT USED FOR UNKNOWN INDICATION
  9. VITAMIN B12 [Concomitant]
     Indication: PRODUCT USED FOR UNKNOWN INDICATION
  10. MULTIVITAMIN [Concomitant]
     Indication: PRODUCT USED FOR UNKNOWN INDICATION
  11. IRON [Concomitant]
     Indication: PRODUCT USED FOR UNKNOWN INDICATION
  12. VSL 3 [Concomitant]
     Indication: PROBIOTIC THERAPY
     Route: 048
     Dates: start: 20131223
  13. VSL 3 [Concomitant]
     Indication: CROHN^S DISEASE
  14. VALIUM [Concomitant]
     Indication: PRODUCT USED FOR UNKNOWN INDICATION
     Dosage: NIGHTLY
  15. PROAIR [Concomitant]
     Indication: PRODUCT USED FOR UNKNOWN INDICATION
     Route: 055

REACTIONS (7)
  - Injection site rash [Recovered/Resolved]
  - Injection site erythema [Recovered/Resolved]
  - Ileostomy closure [Recovered/Resolved]
  - Drug ineffective [Recovered/Resolved]
  - Headache [Recovered/Resolved]
  - Inflammation [Not Recovered/Not Resolved]
  - Headache [Recovered/Resolved]
